FAERS Safety Report 10812055 (Version 1)
Quarter: 2015Q1

REPORT INFORMATION
  Report Type: Spontaneous
  Country: CA (occurrence: CA)
  Receive Date: 20150218
  Receipt Date: 20150218
  Transmission Date: 20150721
  Serious: Yes (Other)
  Sender: FDA-Public Use
  Company Number: CA-CIPLA LTD.-2015CA01321

PATIENT

DRUGS (5)
  1. AMLODIPINE [Suspect]
     Active Substance: AMLODIPINE BESYLATE
     Indication: PRODUCT USED FOR UNKNOWN INDICATION
     Dosage: UNK
  2. ORTERONEL [Suspect]
     Active Substance: ORTERONEL
     Indication: PROSTATE CANCER METASTATIC
     Dosage: 300 MG BID
     Route: 048
  3. PELVIC RADIOTHERAPY [Suspect]
     Active Substance: RADIATION THERAPY
     Indication: PROSTATE CANCER METASTATIC
  4. BICLUTAMIDE [Suspect]
     Active Substance: BICALUTAMIDE
     Indication: PROSTATE CANCER METASTATIC
     Dosage: 50 MG DAILY
     Route: 048
  5. LEUPROLIDE ACETATE. [Suspect]
     Active Substance: LEUPROLIDE ACETATE
     Indication: PROSTATE CANCER METASTATIC
     Dosage: 22.5 MG EVERY 3 MONTHS
     Route: 058

REACTIONS (1)
  - Posterior reversible encephalopathy syndrome [Recovering/Resolving]
